FAERS Safety Report 4606940-2 (Version None)
Quarter: 2005Q1

REPORT INFORMATION
  Report Type: 
  Country: None (occurrence: None)
  Receive Date: 20050309
  Receipt Date: 20050215
  Transmission Date: 20050727
  Serious: Yes (Death, Hospitalization, Other)
  Sender: FDA-Public Use
  Company Number: US_0410106706

PATIENT
  Age: 30 Year
  Sex: Male
  Weight: 107 kg

DRUGS (13)
  1. ZYPREXA [Suspect]
     Indication: SCHIZOPHRENIA
     Dosage: 15 MG
     Dates: start: 20000101
  2. ZYPREXA [Suspect]
     Dosage: 15 MG/TID
  3. PAXIL [Concomitant]
  4. INSULIN [Concomitant]
  5. XANAX (ALPRAZOLAM DUM) [Concomitant]
  6. HALCION [Concomitant]
  7. HALDOL (HALOPERIDOL DECANOATE) [Concomitant]
  8. LITHIUM [Concomitant]
  9. PREVACID [Concomitant]
  10. AUGMENTIN '125' [Concomitant]
  11. VICOPROFEN [Concomitant]
  12. COGENTIN [Concomitant]
  13. PROLIXIN [Concomitant]

REACTIONS (19)
  - DIABETES MELLITUS [None]
  - DIABETIC COMA [None]
  - DIABETIC KETOACIDOSIS [None]
  - DISTURBANCE IN ATTENTION [None]
  - EMOTIONAL DISTRESS [None]
  - FLASHBACK [None]
  - HYPERGLYCAEMIA [None]
  - HYPERTENSION [None]
  - LEGAL PROBLEM [None]
  - MENTAL DISORDER [None]
  - METABOLIC SYNDROME [None]
  - OBESITY [None]
  - PANCREATITIS [None]
  - PANIC ATTACK [None]
  - PRESSURE OF SPEECH [None]
  - PSYCHOTIC DISORDER [None]
  - ROAD TRAFFIC ACCIDENT [None]
  - TREATMENT NONCOMPLIANCE [None]
  - TRISMUS [None]
